FAERS Safety Report 12495170 (Version 10)
Quarter: 2017Q3

REPORT INFORMATION
  Report Type: Spontaneous
  Country: US (occurrence: US)
  Receive Date: 20160624
  Receipt Date: 20170925
  Transmission Date: 20171127
  Serious: Yes (Congenital Anomaly, Other)
  Sender: FDA-Public Use
  Company Number: PHEH2016US015521

PATIENT
  Sex: Male

DRUGS (2)
  1. ZOFRAN ODT [Suspect]
     Active Substance: ONDANSETRON HYDROCHLORIDE
     Indication: FOETAL EXPOSURE DURING PREGNANCY
     Dosage: UNK
     Route: 064
  2. ZOFRAN [Suspect]
     Active Substance: ONDANSETRON HYDROCHLORIDE
     Indication: FOETAL EXPOSURE DURING PREGNANCY
     Dosage: MOTHER^S DOSE: 4 MG, PRN
     Route: 064

REACTIONS (36)
  - Haematoma [Unknown]
  - Ear infection [Unknown]
  - Speech disorder [Unknown]
  - Petechiae [Unknown]
  - Pain [Unknown]
  - Emotional distress [Unknown]
  - Eye infection [Unknown]
  - Hypertrophy [Unknown]
  - Congenital anomaly [Unknown]
  - Multiple congenital abnormalities [Unknown]
  - Cleft lip and palate [Unknown]
  - Premature baby [Unknown]
  - Clavicle fracture [Unknown]
  - Convulsion neonatal [Unknown]
  - Impetigo [Unknown]
  - Dacryostenosis acquired [Unknown]
  - Foetal exposure during pregnancy [Unknown]
  - Otorrhoea [Unknown]
  - Dental alveolar anomaly [Unknown]
  - Velopharyngeal incompetence [Unknown]
  - Otitis media chronic [Unknown]
  - Conductive deafness [Unknown]
  - Diarrhoea neonatal [Unknown]
  - Speech sound disorder [Unknown]
  - Anxiety [Unknown]
  - Anhedonia [Unknown]
  - Gastrooesophageal reflux disease [Unknown]
  - Oral cavity fistula [Unknown]
  - Head injury [Unknown]
  - Dysphonia [Unknown]
  - Cerumen impaction [Unknown]
  - Dacryostenosis congenital [Unknown]
  - Osteochondrosis [Unknown]
  - Injury [Unknown]
  - Gait disturbance [Unknown]
  - Rhinorrhoea [Unknown]

NARRATIVE: CASE EVENT DATE: 20020515
